FAERS Safety Report 6589536-5 (Version None)
Quarter: 2010Q1

REPORT INFORMATION
  Report Type: 
  Country: None (occurrence: None)
  Receive Date: 20100212
  Receipt Date: 20100126
  Transmission Date: 20100710
  Serious: Yes (Hospitalization)
  Sender: FDA-Public Use
  Company Number: 005649

PATIENT
  Sex: Male

DRUGS (5)
  1. NEUPRO [Suspect]
     Indication: RESTLESS LEGS SYNDROME
     Dosage: (1 DF QD, 2MG/24 HOURS TRANSDERMAL)
     Route: 062
     Dates: start: 20100101, end: 20100124
  2. PROPAFENONE HCL [Concomitant]
  3. COUMADIN [Concomitant]
  4. UROXATRAL [Concomitant]
  5. CRESTOR /01588602/ [Concomitant]

REACTIONS (4)
  - BALANCE DISORDER [None]
  - GAIT DISTURBANCE [None]
  - HAEMORRHAGE INTRACRANIAL [None]
  - HEADACHE [None]
